FAERS Safety Report 7568014-0 (Version None)
Quarter: 2011Q2

REPORT INFORMATION
  Report Type: 
  Country: None (occurrence: None)
  Receive Date: 20110623
  Receipt Date: 20110609
  Transmission Date: 20111010
  Serious: Yes (Hospitalization)
  Sender: FDA-Public Use
  Company Number: US-CELGENEUS-163-21880-11050130

PATIENT
  Sex: Female
  Weight: 53.52 kg

DRUGS (8)
  1. DESFERAL [Concomitant]
     Route: 065
  2. PLAQUENIL [Concomitant]
     Dosage: 200 MILLIGRAM
     Route: 065
  3. REVLIMID [Suspect]
     Indication: MULTIPLE MYELOMA
     Dosage: 10 MILLIGRAM
     Route: 048
     Dates: start: 20110301
  4. WHOLE BLOOD [Concomitant]
     Route: 051
     Dates: start: 20110401
  5. FLAGYL [Concomitant]
     Dosage: 500 MILLIGRAM
     Route: 048
  6. CIPROFLOXACIN HCL [Concomitant]
     Dosage: 500 MILLIGRAM
     Route: 048
  7. VICODIN [Concomitant]
     Indication: PAIN
     Dosage: 7.5/750MG
     Route: 065
  8. OMEPRAZOLE [Concomitant]
     Dosage: 20 MILLIGRAM
     Route: 065

REACTIONS (2)
  - URINARY TRACT INFECTION [None]
  - ENTEROVESICAL FISTULA [None]
